FAERS Safety Report 4331582-6 (Version None)
Quarter: 2004Q1

REPORT INFORMATION
  Report Type: 
  Country: None (occurrence: None)
  Receive Date: 20040331
  Receipt Date: 20040312
  Transmission Date: 20041129
  Serious: Yes (Hospitalization)
  Sender: FDA-Public Use
  Company Number: GBS040214424

PATIENT
  Age: 62 Year
  Sex: Male
  Weight: 106 kg

DRUGS (5)
  1. GEMZAR [Suspect]
     Indication: NON-SMALL CELL LUNG CANCER
     Dosage: 2500 MG OTHER
     Route: 050
     Dates: start: 20040121, end: 20040128
  2. CISPLATIN [Concomitant]
  3. METOCLOPRAMIDE [Concomitant]
  4. TRIMETHOPRIM [Concomitant]
  5. GRANISETRON [Concomitant]

REACTIONS (5)
  - MUCOSAL INFLAMMATION [None]
  - NEUTROPENIA [None]
  - PLATELET COUNT DECREASED [None]
  - PURPURA [None]
  - RASH ERYTHEMATOUS [None]
